FAERS Safety Report 7250340-6 (Version None)
Quarter: 2011Q1

REPORT INFORMATION
  Report Type: 
  Country: None (occurrence: None)
  Receive Date: 20110128
  Receipt Date: 20110127
  Transmission Date: 20110831
  Serious: Yes (Other)
  Sender: FDA-Public Use
  Company Number: PL-ABBOTT-11P-129-0695271-00

PATIENT
  Sex: Male
  Weight: 85 kg

DRUGS (2)
  1. HUMIRA [Suspect]
     Indication: PSORIASIS
     Route: 058
     Dates: start: 20100101, end: 20110104
  2. GRIPEX [Suspect]
     Indication: NASOPHARYNGITIS
     Route: 048
     Dates: start: 20110103, end: 20110103

REACTIONS (2)
  - URTICARIA [None]
  - ANGIOEDEMA [None]
